FAERS Safety Report 6018030-5 (Version None)
Quarter: 2008Q4

REPORT INFORMATION
  Report Type: 
  Country: None (occurrence: None)
  Receive Date: 20081223
  Receipt Date: 20081216
  Transmission Date: 20090506
  Serious: Yes (Other)
  Sender: FDA-Public Use
  Company Number: B0551720A

PATIENT
  Age: 43 Year
  Sex: Female

DRUGS (2)
  1. FLUTICASONE PROPIONATE [Suspect]
     Route: 055
  2. RITONAVIR [Suspect]
     Route: 055

REACTIONS (2)
  - CUSHING'S SYNDROME [None]
  - DRUG INTERACTION [None]
